FAERS Safety Report 25237325 (Version 3)
Quarter: 2025Q2

REPORT INFORMATION
  Report Type: Spontaneous
  Country: JP (occurrence: JP)
  Receive Date: 20250425
  Receipt Date: 20250609
  Transmission Date: 20250717
  Serious: Yes (Hospitalization, Other)
  Sender: CSL BEHRING
  Company Number: JP-BEH-2025202134

PATIENT
  Age: 35 Year
  Sex: Female
  Weight: 72 kg

DRUGS (5)
  1. HUMAN IMMUNOGLOBULIN G [Suspect]
     Active Substance: HUMAN IMMUNOGLOBULIN G
     Indication: Product used for unknown indication
     Route: 042
     Dates: start: 20241011, end: 20241015
  2. HUMAN IMMUNOGLOBULIN G [Suspect]
     Active Substance: HUMAN IMMUNOGLOBULIN G
     Dosage: UNK, QMT
     Route: 042
     Dates: end: 202503
  3. PRIVIGEN [Suspect]
     Active Substance: HUMAN IMMUNOGLOBULIN G
     Indication: Chronic inflammatory demyelinating polyradiculoneuropathy
     Route: 042
     Dates: end: 20241231
  4. ELETRIPTAN [Concomitant]
     Active Substance: ELETRIPTAN
     Indication: Migraine
     Route: 048
  5. BILASTINE [Concomitant]
     Active Substance: BILASTINE
     Indication: Chronic spontaneous urticaria
     Route: 065

REACTIONS (6)
  - Chronic inflammatory demyelinating polyradiculoneuropathy [Recovering/Resolving]
  - Metabolic dysfunction-associated steatohepatitis [Recovering/Resolving]
  - Hepatitis B surface antibody positive [Unknown]
  - Hepatitis B core antibody positive [Unknown]
  - Hepatic enzyme increased [Recovering/Resolving]
  - Poor venous access [Unknown]

NARRATIVE: CASE EVENT DATE: 20241024
